FAERS Safety Report 17347218 (Version 1)
Quarter: 2020Q1

REPORT INFORMATION
  Report Type: Spontaneous
  Country: US (occurrence: US)
  Receive Date: 20200129
  Receipt Date: 20200129
  Transmission Date: 20200409
  Serious: No
  Sender: FDA-Public Use
  Company Number: None

PATIENT
  Sex: Male
  Weight: 83.01 kg

DRUGS (3)
  1. LORATADINE 10MG [Concomitant]
     Active Substance: LORATADINE
  2. CAPECITABINE. [Suspect]
     Active Substance: CAPECITABINE
     Indication: RECTAL CANCER
     Dosage: ?          OTHER FREQUENCY:BID ON MON-FRI;?
     Route: 048
     Dates: start: 20200109, end: 20200129
  3. CAPECITABINE. [Suspect]
     Active Substance: CAPECITABINE
     Indication: RECTAL CANCER
     Dosage: ?          OTHER FREQUENCY:BID ON MON-FRI;?
     Route: 048
     Dates: start: 20200109, end: 20200129

REACTIONS (1)
  - Disease progression [None]
